FAERS Safety Report 17481801 (Version 2)
Quarter: 2020Q1

REPORT INFORMATION
  Report Type: Spontaneous
  Country: US (occurrence: US)
  Receive Date: 20200302
  Receipt Date: 20200318
  Transmission Date: 20200409
  Serious: Yes (Other)
  Sender: FDA-Public Use
  Company Number: US-AUROBINDO-AUR-APL-2020-010104

PATIENT
  Age: 56 Year
  Sex: Female
  Weight: 68.4 kg

DRUGS (4)
  1. PROTONIX [Suspect]
     Active Substance: PANTOPRAZOLE SODIUM
     Dosage: UNK
     Route: 065
     Dates: start: 20200204, end: 20200208
  2. FAMOTIDINE TABLETS USP 20MG [Suspect]
     Active Substance: FAMOTIDINE
     Indication: GASTRIC ULCER
     Dosage: 20 MILLIGRAM, TWO TIMES A DAY
     Route: 048
     Dates: start: 20190218
  3. FAMOTIDINE TABLETS USP 20MG [Suspect]
     Active Substance: FAMOTIDINE
     Dosage: 40 MILLIGRAM, TWO TIMES A DAY
     Route: 048
  4. PROTONIX [Suspect]
     Active Substance: PANTOPRAZOLE SODIUM
     Indication: ULCER HAEMORRHAGE
     Dosage: UNK
     Route: 065
     Dates: start: 201910, end: 201912

REACTIONS (12)
  - Gastric ulcer haemorrhage [Recovered/Resolved]
  - Pain [Recovered/Resolved]
  - Heart rate increased [Recovered/Resolved]
  - Vision blurred [Recovered/Resolved]
  - Malaise [Recovered/Resolved]
  - Weight decreased [Recovered/Resolved]
  - Condition aggravated [Recovered/Resolved]
  - Pollakiuria [Recovered/Resolved]
  - Eye swelling [Recovered/Resolved]
  - Eye pain [Recovered/Resolved]
  - Abdominal pain upper [Recovered/Resolved]
  - Chills [Recovered/Resolved]
